FAERS Safety Report 8139040-8 (Version None)
Quarter: 2012Q1

REPORT INFORMATION
  Report Type: 
  Country: None (occurrence: None)
  Receive Date: 20120215
  Receipt Date: 20120209
  Transmission Date: 20120608
  Serious: No
  Sender: FDA-Public Use
  Company Number: US-B.I. PHARMACEUTICALS,INC./RIDGEFIELD-2012-BP-02533BP

PATIENT
  Sex: Female

DRUGS (3)
  1. ADVAIR DISKUS 100/50 [Concomitant]
     Indication: ASTHMA
     Dosage: 1 PUF
     Route: 055
  2. GLUCOSAMINE/CHONDROITIN [Concomitant]
     Indication: PROPHYLAXIS
     Route: 048
  3. ZANTAC [Suspect]
     Indication: DYSPEPSIA
     Route: 048
     Dates: start: 20120101, end: 20120208

REACTIONS (3)
  - DRUG INTOLERANCE [None]
  - BURN OESOPHAGEAL [None]
  - GLOSSODYNIA [None]
